FAERS Safety Report 11575877 (Version 1)
Quarter: 2015Q3

REPORT INFORMATION
  Report Type: Spontaneous
  Country: AL (occurrence: AL)
  Receive Date: 20150930
  Receipt Date: 20150930
  Transmission Date: 20151125
  Serious: Yes (Hospitalization, Other)
  Sender: FDA-Public Use
  Company Number: AL-PERRIGO-15AL009850

PATIENT
  Age: 5 Year
  Sex: Female

DRUGS (6)
  1. ACETAMINOPHEN 650 MG 363 [Suspect]
     Active Substance: ACETAMINOPHEN
     Indication: DIARRHOEA
  2. ACETAMINOPHEN 500MG 484 [Suspect]
     Active Substance: ACETAMINOPHEN
     Indication: VOMITING
  3. ACETAMINOPHEN 650 MG 363 [Suspect]
     Active Substance: ACETAMINOPHEN
     Indication: VOMITING
  4. ACETAMINOPHEN 650 MG 363 [Suspect]
     Active Substance: ACETAMINOPHEN
     Indication: PYREXIA
     Dosage: 250 MG Q3HR
     Route: 054
  5. ACETAMINOPHEN 500MG 484 [Suspect]
     Active Substance: ACETAMINOPHEN
     Indication: DIARRHOEA
  6. ACETAMINOPHEN 500MG 484 [Suspect]
     Active Substance: ACETAMINOPHEN
     Indication: PYREXIA
     Dosage: 500 MG Q3HR
     Route: 048

REACTIONS (29)
  - Encephalopathy [Recovered/Resolved]
  - Lethargy [Recovered/Resolved]
  - Somnolence [Recovered/Resolved]
  - Diarrhoea [None]
  - Klebsiella infection [None]
  - Hypokalaemia [None]
  - Arthritis [None]
  - Toxicity to various agents [Recovered/Resolved]
  - Abdominal pain [Recovered/Resolved]
  - Mydriasis [Recovered/Resolved]
  - Dehydration [None]
  - Blood glucose decreased [None]
  - Blood glucose increased [None]
  - Accidental overdose [Recovered/Resolved]
  - Pyrexia [Recovered/Resolved]
  - Hepatic failure [Recovered/Resolved]
  - Renal impairment [Recovered/Resolved]
  - Pancreatitis acute [Recovered/Resolved]
  - Agitation [Recovered/Resolved]
  - Coagulopathy [Recovered/Resolved]
  - Hypernatraemia [None]
  - Thrombophlebitis [None]
  - Jaundice [Recovered/Resolved]
  - Hepatomegaly [Recovered/Resolved]
  - Vomiting [Recovered/Resolved]
  - Melaena [Recovered/Resolved]
  - Hepatotoxicity [None]
  - Confusional state [Recovered/Resolved]
  - Haematemesis [Recovered/Resolved]
